FAERS Safety Report 16624367 (Version 3)
Quarter: 2019Q4

REPORT INFORMATION
  Report Type: Spontaneous
  Country: US (occurrence: US)
  Receive Date: 20190724
  Receipt Date: 20191025
  Transmission Date: 20200122
  Serious: Yes (Other)
  Sender: FDA-Public Use
  Company Number: US-TORRENT-00009018

PATIENT
  Age: 67 Year
  Sex: Male
  Weight: 93 kg

DRUGS (4)
  1. NITRO-GLYCERINE [Concomitant]
     Indication: CHEST PAIN
     Dosage: OCCASIONALLY ONCE IN A DAY AS NEEDED
     Route: 048
     Dates: start: 20161017
  2. LOSARTAN AND HYDROCHLOROTHIAZIDE [Suspect]
     Active Substance: HYDROCHLOROTHIAZIDE\LOSARTAN POTASSIUM
     Indication: HYPERTENSION
     Dosage: START DATE 2016 AND STOP DATE 04-JUN-2019
     Route: 048
  3. METOPROLOL SUCCINATE. [Concomitant]
     Active Substance: METOPROLOL SUCCINATE
     Indication: HYPERTENSION
  4. FENOFIBRATE. [Concomitant]
     Active Substance: FENOFIBRATE
     Indication: DYSLIPIDAEMIA
     Dosage: SINCE 4 YEARS, ONCE A DAY
     Dates: start: 2015

REACTIONS (5)
  - Cough [Not Recovered/Not Resolved]
  - Glaucoma [Not Recovered/Not Resolved]
  - Bronchitis [Unknown]
  - Dizziness [Not Recovered/Not Resolved]
  - Lung disorder [Not Recovered/Not Resolved]

NARRATIVE: CASE EVENT DATE: 2018
